FAERS Safety Report 8608251-7 (Version None)
Quarter: 2012Q3

REPORT INFORMATION
  Report Type: 
  Country: None (occurrence: None)
  Receive Date: 20120821
  Receipt Date: 20120810
  Transmission Date: 20120928
  Serious: Yes (Hospitalization)
  Sender: FDA-Public Use
  Company Number: JP-UCBSA-058587

PATIENT
  Age: 45 Year
  Sex: Female

DRUGS (11)
  1. CERTOLIZUMAB PEGOL [Suspect]
     Indication: RHEUMATOID ARTHRITIS
     Route: 058
     Dates: start: 20101027, end: 20120509
  2. CELECOXIB [Suspect]
     Indication: RHEUMATOID ARTHRITIS
     Dosage: DAILY DOSE:200 MG
     Route: 048
     Dates: start: 20091216
  3. FOLIC ACID [Concomitant]
     Dates: start: 20110327
  4. CALBLOCK [Suspect]
     Indication: HYPERTENSION
     Dosage: DAILY DOSE: 16 MG
     Route: 048
     Dates: start: 20120412
  5. CERTOLIZUMAB PEGOL [Suspect]
     Route: 058
     Dates: start: 20091028, end: 20101014
  6. CALBLOCK [Suspect]
     Route: 048
  7. KETOPROFEN [Concomitant]
     Dosage: QS PRN
     Dates: start: 20120315
  8. OLMESARTAN MEDOXOMIL [Suspect]
     Indication: HYPERTENSION
     Dosage: DAILY DOSE: 20 MG
     Route: 048
     Dates: start: 20120412, end: 20120731
  9. METHOTREXATE [Concomitant]
     Dates: start: 20110324
  10. LOXOPROFEN SODIUM [Concomitant]
     Dates: start: 20120315
  11. TEPRENONE [Concomitant]
     Dates: start: 20091216

REACTIONS (1)
  - SUDDEN HEARING LOSS [None]
